FAERS Safety Report 6107165-4 (Version None)
Quarter: 2009Q1

REPORT INFORMATION
  Report Type: 
  Country: None (occurrence: None)
  Receive Date: 20090305
  Receipt Date: 20090305
  Transmission Date: 20090719
  Serious: Yes (Disabling)
  Sender: FDA-Public Use
  Company Number: None

PATIENT
  Sex: Female
  Weight: 68.0396 kg

DRUGS (1)
  1. LAMICTAL [Suspect]
     Indication: BIPOLAR DISORDER
     Dosage: 200 MG ONCE A DAY
     Dates: start: 20020101, end: 20080101

REACTIONS (4)
  - CHEILITIS [None]
  - MOUTH ULCERATION [None]
  - ORAL MUCOSAL DISCOLOURATION [None]
  - STOMATITIS [None]
